FAERS Safety Report 21773972 (Version 3)
Quarter: 2023Q1

REPORT INFORMATION
  Report Type: Report from Study
  Country: US (occurrence: US)
  Receive Date: 20221223
  Receipt Date: 20230303
  Transmission Date: 20230417
  Serious: Yes (Hospitalization)
  Sender: FDA-Public Use
  Company Number: US-BAUSCH-BL-2022-027968

PATIENT
  Age: 54 Year
  Sex: Female

DRUGS (1)
  1. XIFAXAN [Suspect]
     Active Substance: RIFAXIMIN
     Indication: Hepatic failure
     Route: 048
     Dates: start: 20210421

REACTIONS (3)
  - Urinary tract infection [Recovering/Resolving]
  - Liver disorder [Unknown]
  - Liver transplant [Unknown]

NARRATIVE: CASE EVENT DATE: 20221209
